FAERS Safety Report 7428370-0 (Version None)
Quarter: 2011Q2

REPORT INFORMATION
  Report Type: 
  Country: None (occurrence: None)
  Receive Date: 20110412
  Receipt Date: 20110407
  Transmission Date: 20111010
  Serious: Yes (Hospitalization)
  Sender: FDA-Public Use
  Company Number: 2011SP014314

PATIENT
  Age: 97 Year
  Sex: Male

DRUGS (12)
  1. DIAMICRON (GLICLAZIDE) [Suspect]
     Indication: TYPE 2 DIABETES MELLITUS
     Dosage: 30 MG, QD, PO
     Route: 048
     Dates: end: 20100720
  2. SERESTA [Concomitant]
  3. TIAPRIDAL (TIAPRIDE) [Suspect]
     Indication: AGITATION
     Dosage: 100 MG BID, PO
     Route: 048
     Dates: end: 20100720
  4. NOCTRAN (NOCTRAN 10) [Suspect]
     Indication: INSOMNIA
     Dosage: 10 MG QD, PO
     Route: 048
     Dates: end: 20100714
  5. NORSET (MIRTAZAPINE /01293201/) [Suspect]
     Indication: AGITATION
     Dosage: PO
     Route: 048
     Dates: start: 20100713, end: 20100720
  6. LASIX [Suspect]
     Indication: PRODUCT USED FOR UNKNOWN INDICATION
     Dosage: 40 MG QD, PO
     Route: 048
     Dates: end: 20100701
  7. EQUANIL [Suspect]
     Indication: AGITATION
     Dosage: 250 MG TID, PO
     Route: 048
     Dates: end: 20100714
  8. STAGID (METFORMIN EMBONATE) [Suspect]
     Indication: TYPE 2 DIABETES MELLITUS
     Dosage: 700 MG QD, PO
     Route: 048
     Dates: end: 20100720
  9. STILNOX [Concomitant]
  10. ROCEPHIN [Concomitant]
  11. XANAX [Suspect]
     Indication: AGITATION
     Dosage: 100 MG, QD, PO
     Route: 048
     Dates: start: 20100714, end: 20100720
  12. DUPHALAC [Concomitant]

REACTIONS (5)
  - HEPATITIS CHOLESTATIC [None]
  - SOMNOLENCE [None]
  - PSYCHOMOTOR RETARDATION [None]
  - HEAD INJURY [None]
  - FALL [None]
